FAERS Safety Report 18634418 (Version 1)
Quarter: 2020Q4

REPORT INFORMATION
  Report Type: Spontaneous
  Country: FR (occurrence: FR)
  Receive Date: 20201218
  Receipt Date: 20201218
  Transmission Date: 20210114
  Serious: Yes (Other)
  Sender: FDA-Public Use
  Company Number: FR-TEVA-2020-FR-1859211

PATIENT
  Age: 58 Year
  Sex: Female
  Weight: 58 kg

DRUGS (14)
  1. LANSOYL [Concomitant]
     Active Substance: MINERAL OIL
     Route: 048
  2. VANCOMYCINE [Suspect]
     Active Substance: VANCOMYCIN
     Indication: INFECTION
     Route: 042
     Dates: start: 20200610, end: 20200707
  3. FENTANYL. [Concomitant]
     Active Substance: FENTANYL
     Dosage: 0.5 UCI
     Route: 062
  4. TRAMADOL (CHLORHYDRATE DE) [Concomitant]
     Active Substance: TRAMADOL HYDROCHLORIDE
     Dosage: 100 MG
     Route: 048
  5. LEVOFLOXACINE [Suspect]
     Active Substance: LEVOFLOXACIN
     Indication: INFECTION
     Dosage: 750 MG
     Route: 048
     Dates: start: 20200701, end: 20200707
  6. LOPERAMIDE (CHLORHYDRATE DE) [Concomitant]
     Active Substance: LOPERAMIDE
     Dosage: 2 MG
     Route: 048
  7. AXEPIM [Concomitant]
     Active Substance: CEFEPIME HYDROCHLORIDE
     Indication: INFECTION
     Route: 042
     Dates: start: 20200610, end: 20200701
  8. GABAPENTINE [Concomitant]
     Active Substance: GABAPENTIN
     Dosage: 3000 MG
     Route: 048
  9. FLAGYL [Concomitant]
     Active Substance: METRONIDAZOLE\METRONIDAZOLE HYDROCHLORIDE
     Dosage: 500 MG
     Route: 048
     Dates: start: 20200610, end: 20200701
  10. ZOPICLONE [Concomitant]
     Active Substance: ZOPICLONE
     Dosage: 7.5 MG
     Route: 048
  11. BACLOFENE [Concomitant]
     Active Substance: BACLOFEN
     Route: 048
  12. BICARBONATE DE SODIUM [Concomitant]
     Active Substance: SODIUM BICARBONATE
  13. DULOXETINE (CHLORHYDRATE DE) [Concomitant]
     Active Substance: DULOXETINE
     Dosage: 60 MG
     Route: 048
  14. TERCIAN 40 MG/ML, SOLUTION BUVABLE EN GOUTTES [Concomitant]
     Active Substance: CYAMEMAZINE
     Dosage: 10 GTT
     Route: 048

REACTIONS (1)
  - Agranulocytosis [Recovered/Resolved]

NARRATIVE: CASE EVENT DATE: 20200707
